FAERS Safety Report 14617902 (Version 3)
Quarter: 2019Q3

REPORT INFORMATION
  Report Type: Report from Study
  Country: US (occurrence: US)
  Receive Date: 20180309
  Receipt Date: 20190925
  Transmission Date: 20191004
  Serious: Yes (Death, Other)
  Sender: FDA-Public Use
  Company Number: US-REGENERON PHARMACEUTICALS, INC.-2018-16651

PATIENT

DRUGS (3)
  1. EYLEA [Suspect]
     Active Substance: AFLIBERCEPT
     Dosage: 2 MG, EVERY 9 WEEKS, IN BOTH EYES
     Route: 031
     Dates: start: 20171108, end: 20171108
  2. EYLEA [Suspect]
     Active Substance: AFLIBERCEPT
     Indication: CHOROIDAL NEOVASCULARISATION
     Dosage: 2 MG, EVERY 9 WEEKS, IN BOTH EYES
     Route: 031
     Dates: start: 20171031, end: 20171031
  3. EYLEA [Suspect]
     Active Substance: AFLIBERCEPT
     Indication: NEOVASCULAR AGE-RELATED MACULAR DEGENERATION
     Dosage: 2 MG, EVERY 9 WEEKS, IN BOTH EYES
     Route: 031
     Dates: start: 20130326, end: 20171108

REACTIONS (1)
  - Death [Fatal]
